FAERS Safety Report 10272753 (Version 2)
Quarter: 2014Q3

REPORT INFORMATION
  Report Type: Spontaneous
  Country: TR (occurrence: TR)
  Receive Date: 20140702
  Receipt Date: 20140709
  Transmission Date: 20150326
  Serious: Yes (Death, Hospitalization, Congenital Anomaly)
  Sender: FDA-Public Use
  Company Number: TR-TEVA-490977ISR

PATIENT
  Sex: Male
  Weight: 2.4 kg

DRUGS (1)
  1. PAROXETINE [Suspect]
     Active Substance: PAROXETINE\PAROXETINE HYDROCHLORIDE
     Dosage: 20MG DAILY
     Route: 064

REACTIONS (6)
  - Pulmonary artery atresia [Not Recovered/Not Resolved]
  - Persistent left superior vena cava [Not Recovered/Not Resolved]
  - Cardiac arrest [Fatal]
  - Ventricular septal defect [Not Recovered/Not Resolved]
  - Foetal exposure during pregnancy [Unknown]
  - Atrial septal defect [Not Recovered/Not Resolved]
